FAERS Safety Report 19150799 (Version 1)
Quarter: 2021Q2

REPORT INFORMATION
  Report Type: Spontaneous
  Country: US (occurrence: US)
  Receive Date: 20210419
  Receipt Date: 20210419
  Transmission Date: 20210717
  Serious: No
  Sender: FDA-Public Use
  Company Number: US-SA-2021SA125339

PATIENT
  Age: 18 Year
  Sex: Male
  Weight: 68 kg

DRUGS (1)
  1. DUPIXENT [Suspect]
     Active Substance: DUPILUMAB
     Indication: DERMATITIS ATOPIC
     Dosage: CHANGED TO SYRINGE DUE TO THE PEN CAUSING INJECTION PAIN.
     Route: 058
     Dates: start: 202002

REACTIONS (2)
  - Injection site pain [Unknown]
  - Off label use [Unknown]

NARRATIVE: CASE EVENT DATE: 20210412
